FAERS Safety Report 7950825-0 (Version None)
Quarter: 2011Q4

REPORT INFORMATION
  Report Type: 
  Country: None (occurrence: None)
  Receive Date: 20111201
  Receipt Date: 20111128
  Transmission Date: 20120403
  Serious: Yes (Other)
  Sender: FDA-Public Use
  Company Number: US-PFIZER INC-2011290189

PATIENT
  Sex: Female
  Weight: 80 kg

DRUGS (20)
  1. MAGNESIUM [Concomitant]
     Dosage: UNK
  2. PRAZOSIN [Concomitant]
     Dosage: UNK
  3. AMBIEN [Concomitant]
     Dosage: UNK
  4. CELECOXIB [Concomitant]
     Dosage: UNK
  5. PANTOPRAZOLE [Concomitant]
     Dosage: UNK
  6. CLINDAMYCIN [Concomitant]
     Dosage: UNK
  7. SINGULAIR [Concomitant]
     Dosage: UNK
  8. COMPAZINE [Concomitant]
     Dosage: UNK
  9. TOPAMAX [Concomitant]
     Dosage: UNK
  10. HYDROXYZINE [Concomitant]
     Dosage: UNK
  11. PROMETHAZINE [Concomitant]
     Dosage: UNK
  12. ACETAMINOPHEN [Concomitant]
     Dosage: UNK
  13. ONDANSETRON [Concomitant]
     Dosage: UNK
  14. LYRICA [Suspect]
     Indication: PAIN
     Dosage: 100 MG, 3X/DAY
     Route: 048
     Dates: start: 20111123
  15. DOCUSATE [Concomitant]
     Dosage: UNK
  16. LIDOCAINE [Concomitant]
     Dosage: UNK
  17. DIAZEPAM [Concomitant]
     Dosage: UNK
  18. LOPERAMIDE [Concomitant]
     Dosage: UNK
  19. ZOLOFT [Concomitant]
     Dosage: UNK
  20. NYSTATIN [Concomitant]
     Dosage: UNK

REACTIONS (1)
  - ANGIOEDEMA [None]
